FAERS Safety Report 17850548 (Version 2)
Quarter: 2020Q2

REPORT INFORMATION
  Report Type: Spontaneous
  Country: SA (occurrence: SA)
  Receive Date: 20200602
  Receipt Date: 20200604
  Transmission Date: 20200714
  Serious: Yes (Life-Threatening, Hospitalization, Other)
  Sender: FDA-Public Use
  Company Number: SA-SA-2020SA138324

PATIENT

DRUGS (1)
  1. ALEMTUZUMAB [Suspect]
     Active Substance: ALEMTUZUMAB
     Indication: RELAPSING-REMITTING MULTIPLE SCLEROSIS
     Dosage: 12 MG
     Dates: start: 201702, end: 201702

REACTIONS (13)
  - Cough [Recovering/Resolving]
  - Pyrexia [Recovering/Resolving]
  - End stage renal disease [Recovering/Resolving]
  - Pulmonary alveolar haemorrhage [Recovering/Resolving]
  - Chromaturia [Recovering/Resolving]
  - Acute respiratory distress syndrome [Recovering/Resolving]
  - Renal tubular injury [Recovering/Resolving]
  - Generalised tonic-clonic seizure [Recovering/Resolving]
  - Cerebrovascular accident [Recovering/Resolving]
  - Nephropathy [Recovering/Resolving]
  - Autoimmune haemolytic anaemia [Recovering/Resolving]
  - Depressed level of consciousness [Recovering/Resolving]
  - Jaundice [Recovering/Resolving]

NARRATIVE: CASE EVENT DATE: 201710
